FAERS Safety Report 8084209 (Version 10)
Quarter: 2012Q4

REPORT INFORMATION
  Report Type: 
  Country: CA (occurrence: CA)
  Receive Date: 20110810
  Receipt Date: 20121212
  Transmission Date: 20130627
  Serious: Yes (Hospitalization, Other)
  Sender: FDA-Public Use
  Company Number: PHHY2011CA52299

PATIENT
  Sex: Male

DRUGS (4)
  1. SANDOSTATIN LAR [Suspect]
     Indication: PANCREATIC NEUROENDOCRINE TUMOUR
     Dosage: 30 mg, QMO
     Route: 030
     Dates: start: 20110315
  2. SANDOSTATIN LAR [Suspect]
     Dosage: 30 mg, every 4 weeks
     Route: 030
     Dates: start: 20070727
  3. AFINITOR [Suspect]
     Indication: PANCREATIC NEUROENDOCRINE TUMOUR
     Dosage: 5 mg
     Route: 048
     Dates: start: 20120727
  4. AFINITOR [Suspect]
     Dosage: 5 mg, QD
     Route: 048
     Dates: start: 20120529, end: 20121206

REACTIONS (11)
  - Sensation of pressure [Unknown]
  - Sleep disorder [Unknown]
  - Fall [Unknown]
  - Neoplasm [Unknown]
  - Malignant neoplasm progression [Unknown]
  - Back pain [Unknown]
  - Balance disorder [Unknown]
  - Anxiety [Unknown]
  - Dizziness [Unknown]
  - Insomnia [Unknown]
  - Blood pressure increased [Unknown]
